FAERS Safety Report 5627803-X (Version None)
Quarter: 2008Q1

REPORT INFORMATION
  Report Type: 
  Country: None (occurrence: None)
  Receive Date: 20080215
  Receipt Date: 20080214
  Transmission Date: 20080703
  Serious: Yes (Life-Threatening, Hospitalization)
  Sender: FDA-Public Use
  Company Number: B0508268A

PATIENT
  Age: 77 Year
  Sex: Male

DRUGS (3)
  1. COROPRES [Suspect]
     Indication: MYOCARDIAL ISCHAEMIA
     Dosage: 25MG PER DAY
     Route: 048
     Dates: start: 20070426, end: 20070804
  2. OLMETEC [Suspect]
     Indication: MYOCARDIAL ISCHAEMIA
     Dosage: 40MG PER DAY
     Route: 048
     Dates: start: 20070426, end: 20070804
  3. SALIDUR [Concomitant]
     Route: 065
     Dates: start: 20070426

REACTIONS (2)
  - ATRIOVENTRICULAR BLOCK [None]
  - BRADYARRHYTHMIA [None]
